FAERS Safety Report 9624216 (Version 1)
Quarter: 2013Q4

REPORT INFORMATION
  Report Type: Spontaneous
  Country: MX (occurrence: MX)
  Receive Date: 20131015
  Receipt Date: 20131015
  Transmission Date: 20140711
  Serious: Yes (Death, Life-Threatening, Hospitalization)
  Sender: FDA-Public Use
  Company Number: MX-BRISTOL-MYERS SQUIBB COMPANY-19510122

PATIENT
  Age: 28 Year
  Sex: Female

DRUGS (1)
  1. OHRENCIA [Suspect]
     Indication: RHEUMATOID ARTHRITIS
     Route: 042
     Dates: start: 20130620

REACTIONS (5)
  - Rheumatoid arthritis [Fatal]
  - Multi-organ failure [Unknown]
  - Arthropathy [Unknown]
  - Decreased appetite [Unknown]
  - Swelling [Unknown]
